FAERS Safety Report 21468665 (Version 2)
Quarter: 2022Q4

REPORT INFORMATION
  Report Type: Report from Study
  Country: ES (occurrence: ES)
  Receive Date: 20221018
  Receipt Date: 20221019
  Transmission Date: 20230113
  Serious: Yes (Hospitalization, Other)
  Sender: FDA-Public Use
  Company Number: ES-BRISTOL-MYERS SQUIBB COMPANY-2022-092363

PATIENT
  Age: 69 Year
  Sex: Male
  Weight: 62.5 kg

DRUGS (5)
  1. NIVOLUMAB [Suspect]
     Active Substance: NIVOLUMAB
     Indication: Squamous cell carcinoma of head and neck
     Route: 042
     Dates: start: 20210629, end: 20210910
  2. NIVOLUMAB [Suspect]
     Active Substance: NIVOLUMAB
     Route: 042
     Dates: start: 20210924, end: 20220805
  3. PACLITAXEL [Suspect]
     Active Substance: PACLITAXEL
     Indication: Squamous cell carcinoma of head and neck
     Route: 042
     Dates: start: 20210629, end: 20210917
  4. CODEINE [Concomitant]
     Active Substance: CODEINE
     Indication: Cough
     Route: 048
     Dates: start: 20220630
  5. ZALDIAR [Concomitant]
     Active Substance: ACETAMINOPHEN\TRAMADOL HYDROCHLORIDE
     Indication: Product used for unknown indication
     Route: 048
     Dates: start: 20210623

REACTIONS (3)
  - Respiratory failure [Unknown]
  - Klebsiella infection [Recovered/Resolved]
  - Bronchial aspiration procedure [Unknown]

NARRATIVE: CASE EVENT DATE: 20220812
